FAERS Safety Report 8282546-1 (Version None)
Quarter: 2012Q2

REPORT INFORMATION
  Report Type: 
  Country: None (occurrence: None)
  Receive Date: 20120410
  Receipt Date: 20120402
  Transmission Date: 20120825
  Serious: Yes (Hospitalization)
  Sender: FDA-Public Use
  Company Number: 2012-001349

PATIENT
  Sex: Female

DRUGS (1)
  1. ATELVIA [Suspect]
     Indication: OSTEOPOROSIS
     Dosage: 35 MG, ORAL
     Route: 048
     Dates: start: 20120201, end: 20120209

REACTIONS (8)
  - NON-CARDIAC CHEST PAIN [None]
  - JOINT RANGE OF MOTION DECREASED [None]
  - BURSITIS [None]
  - ARTHRALGIA [None]
  - JOINT SWELLING [None]
  - NECK PAIN [None]
  - BACK PAIN [None]
  - MUSCULOSKELETAL PAIN [None]
